FAERS Safety Report 4865832-4 (Version None)
Quarter: 2005Q4

REPORT INFORMATION
  Report Type: 
  Country: None (occurrence: None)
  Receive Date: 20051220
  Receipt Date: 20051209
  Transmission Date: 20060501
  Serious: Yes (Hospitalization)
  Sender: FDA-Public Use
  Company Number: 2005131443

PATIENT
  Age: 61 Year
  Sex: Female
  Weight: 90 kg

DRUGS (3)
  1. LYRICA [Suspect]
     Indication: NEURALGIA
     Dosage: 150 MG (UNKNOWN); ORAL
     Route: 048
     Dates: start: 20050828, end: 20050901
  2. MARCUMAR [Concomitant]
  3. BENALAPRIL (ENALAPRIL) [Concomitant]

REACTIONS (13)
  - DERMATITIS BULLOUS [None]
  - DERMATOMYOSITIS [None]
  - EPIDERMAL NECROSIS [None]
  - ERYTHEMA [None]
  - GAIT DISTURBANCE [None]
  - GENERAL PHYSICAL HEALTH DETERIORATION [None]
  - HYPOAESTHESIA [None]
  - PARAESTHESIA ORAL [None]
  - PARESIS [None]
  - PERIPHERAL SENSORY NEUROPATHY [None]
  - SKIN DISCOLOURATION [None]
  - SKIN DISORDER [None]
  - SKIN FISSURES [None]
